FAERS Safety Report 8232350-5 (Version None)
Quarter: 2012Q1

REPORT INFORMATION
  Report Type: 
  Country: None (occurrence: None)
  Receive Date: 20120323
  Receipt Date: 20120320
  Transmission Date: 20120608
  Serious: Yes (Death, Hospitalization)
  Sender: FDA-Public Use
  Company Number: US-GLAXOSMITHKLINE-A0967375A

PATIENT
  Age: 54 Year
  Sex: Male

DRUGS (7)
  1. GABAPENTIN [Concomitant]
  2. ALBUTEROL [Concomitant]
  3. LUNESTA [Concomitant]
  4. ADVAIR DISKUS 100/50 [Suspect]
     Indication: CHRONIC OBSTRUCTIVE PULMONARY DISEASE
     Dosage: 1PUFF TWICE PER DAY
     Route: 055
     Dates: end: 20100501
  5. FLEXERIL [Concomitant]
  6. SPIRIVA [Concomitant]
  7. METHADONE HCL [Concomitant]

REACTIONS (4)
  - RESPIRATORY FAILURE [None]
  - CARDIAC ARREST [None]
  - CARDIAC FAILURE CONGESTIVE [None]
  - PNEUMONIA [None]
